FAERS Safety Report 21243536 (Version 6)
Quarter: 2023Q2

REPORT INFORMATION
  Report Type: Report from Study
  Country: US (occurrence: US)
  Receive Date: 20220823
  Receipt Date: 20230602
  Transmission Date: 20230721
  Serious: Yes (Hospitalization)
  Sender: FDA-Public Use
  Company Number: US-ARGENX-2022-ARGX-US001547

PATIENT
  Age: 61 Year
  Sex: Female

DRUGS (1)
  1. VYVGART [Suspect]
     Active Substance: EFGARTIGIMOD ALFA-FCAB
     Indication: Myasthenia gravis
     Dosage: UNK
     Route: 042
     Dates: start: 202206

REACTIONS (7)
  - Myasthenia gravis [Unknown]
  - Disease recurrence [Unknown]
  - Nasopharyngitis [Unknown]
  - Fall [Unknown]
  - Neuropathy peripheral [Unknown]
  - Dysphagia [Unknown]
  - Fatigue [Unknown]

NARRATIVE: CASE EVENT DATE: 20220801
